FAERS Safety Report 18236478 (Version 3)
Quarter: 2020Q4

REPORT INFORMATION
  Report Type: Report from Study
  Country: None (occurrence: BE)
  Receive Date: 20200907
  Receipt Date: 20201214
  Transmission Date: 20210113
  Serious: Yes (Hospitalization)
  Sender: FDA-Public Use
  Company Number: BE-ABBVIE-19S-013-2760961-00

PATIENT
  Age: 74 Year
  Sex: Female
  Weight: 80 kg

DRUGS (38)
  1. DUODOPA [Suspect]
     Active Substance: CARBIDOPA\LEVODOPA
     Dosage: MD=2ML, CD=2.9ML/HR DURING 16HRS, ED=2ML; ND=2.1ML/HR DURING?8HRS
     Route: 050
     Dates: start: 20200910, end: 20201207
  2. MYSOLINE [Concomitant]
     Active Substance: PRIMIDONE
     Indication: PRODUCT USED FOR UNKNOWN INDICATION
  3. DIAZEPAM. [Concomitant]
     Active Substance: DIAZEPAM
     Indication: PRODUCT USED FOR UNKNOWN INDICATION
  4. DUODOPA [Suspect]
     Active Substance: CARBIDOPA\LEVODOPA
     Dosage: DOSES CONTINUOUSLY MONITORED AND ADAPTED
     Route: 050
     Dates: start: 20180608, end: 20190408
  5. DUODOPA [Suspect]
     Active Substance: CARBIDOPA\LEVODOPA
     Dosage: MD= 3ML??CD= 2.5ML/HR DURING 16HRS ??ED= 1.5ML
     Route: 050
     Dates: start: 20190408, end: 20190424
  6. DUODOPA [Suspect]
     Active Substance: CARBIDOPA\LEVODOPA
     Dosage: MD= 3ML??CD= 2.7ML/HR DURING 16HRS ??ED= 1.5ML
     Route: 050
     Dates: start: 20190424, end: 20190621
  7. DUODOPA [Suspect]
     Active Substance: CARBIDOPA\LEVODOPA
     Dosage: MD=3ML, CD=4ML/HR DURING 16HRS, ED=1.5ML
     Route: 050
     Dates: start: 20191030, end: 20191104
  8. MIRAPEXIN [Concomitant]
     Active Substance: PRAMIPEXOLE
  9. REDOMEX [Concomitant]
     Active Substance: AMITRIPTYLINE HYDROCHLORIDE
     Indication: PRODUCT USED FOR UNKNOWN INDICATION
  10. TRADONAL [Concomitant]
     Active Substance: TRAMADOL HYDROCHLORIDE
     Indication: PRODUCT USED FOR UNKNOWN INDICATION
  11. DUODOPA [Suspect]
     Active Substance: CARBIDOPA\LEVODOPA
     Dosage: MD=3ML, CD=3.7ML/HR DURING 16HRS, ED=1.5ML
     Route: 050
     Dates: start: 20191104, end: 20191211
  12. DUODOPA [Suspect]
     Active Substance: CARBIDOPA\LEVODOPA
     Dosage: MD=3ML, CD=3.3ML/HR DURING 16HRS, ED=1.5ML
     Route: 050
     Dates: start: 20200701, end: 20200729
  13. DUODOPA [Suspect]
     Active Substance: CARBIDOPA\LEVODOPA
     Dosage: MD=1ML, CD=2.9ML/HR DURING 16HRS, ED=1.5ML; ND=2.1ML/HR DURING?8HRS
     Route: 050
     Dates: start: 20200907, end: 20200910
  14. PROLOPA 125 [Concomitant]
     Indication: PARKINSON^S DISEASE
     Dosage: 100MG/25MG; UNIT DOSE:UNSPECIFIED AMOUNT OF TAB 6 TIMES A DAY AND 0.5 TABLET 2 TIMES A DAY
     Route: 048
  15. PROLOPA 125 [Concomitant]
     Dosage: FORM STRENGTH: 100MG/25MG, RESCUE MEDICATION
  16. DUODOPA [Suspect]
     Active Substance: CARBIDOPA\LEVODOPA
     Indication: PARKINSON^S DISEASE
     Dosage: MD= 5.5ML CD= 2.9ML/HR DURING 16HRS ED= 1ML
     Route: 050
     Dates: start: 20180604, end: 20180608
  17. DUODOPA [Suspect]
     Active Substance: CARBIDOPA\LEVODOPA
     Dosage: MD=3ML, CD=3.5ML/HR DURING 16HRS, ED=1.5ML
     Route: 050
     Dates: start: 20191211, end: 20191219
  18. DUODOPA [Suspect]
     Active Substance: CARBIDOPA\LEVODOPA
     Dosage: CD=3ML
     Route: 050
     Dates: start: 201912, end: 201912
  19. DUODOPA [Suspect]
     Active Substance: CARBIDOPA\LEVODOPA
     Dosage: MD=3ML, CD=3.3ML/HR DURING 16HRS, ED=1.5ML
     Route: 050
     Dates: start: 20200623, end: 20200626
  20. PROLOPA DISP [Concomitant]
     Indication: PRODUCT USED FOR UNKNOWN INDICATION
     Dosage: UNIT DOSE: 0.5 TABLET 2 TIMES A DAY AND 1 TABLET IF NEEDED DURING THE NIGHT
  21. DUODOPA [Suspect]
     Active Substance: CARBIDOPA\LEVODOPA
     Dosage: MD=3ML, CD=2.9ML/HR DURING 16HRS, ED=1.5ML
     Route: 050
     Dates: start: 20190621, end: 20190625
  22. DUODOPA [Suspect]
     Active Substance: CARBIDOPA\LEVODOPA
     Route: 050
     Dates: start: 20190723, end: 20190731
  23. DUODOPA [Suspect]
     Active Substance: CARBIDOPA\LEVODOPA
     Dosage: CD=3ML
     Route: 050
     Dates: start: 20191222, end: 20200213
  24. DUODOPA [Suspect]
     Active Substance: CARBIDOPA\LEVODOPA
     Route: 050
     Dates: start: 20200213, end: 20200408
  25. DUODOPA [Suspect]
     Active Substance: CARBIDOPA\LEVODOPA
     Dosage: MD= 3,0 ML, CD= 3.5 ML/HR DURING 16HRS, ED= 1.5 ML
     Route: 050
     Dates: start: 20200729, end: 20200901
  26. DUODOPA [Suspect]
     Active Substance: CARBIDOPA\LEVODOPA
     Dosage: MD=2ML, CD=3.3ML/HR DURING 16HRS, ED=2ML, ND=2.2ML/HR DURING 8HRS
     Route: 050
     Dates: start: 20201208
  27. DUODOPA [Suspect]
     Active Substance: CARBIDOPA\LEVODOPA
     Dosage: MD=3ML, CD=3.1ML/HR DURING 16HRS, ED=1.5ML
     Route: 050
     Dates: start: 20190625, end: 20190718
  28. DUODOPA [Suspect]
     Active Substance: CARBIDOPA\LEVODOPA
     Dosage: MD=3ML, CD=3.7ML/HR DURING 16HRS, ED=1.5ML
     Route: 050
     Dates: start: 20190731, end: 20191030
  29. DUODOPA [Suspect]
     Active Substance: CARBIDOPA\LEVODOPA
     Dosage: DOSES CONTINUOUSLY MONITORED AND ADAPTED
     Route: 050
     Dates: start: 20200408, end: 20200410
  30. DUODOPA [Suspect]
     Active Substance: CARBIDOPA\LEVODOPA
     Dosage: MD=3ML, CD=3.1ML/HR DURING 16HRS, ED=1.5ML
     Route: 050
     Dates: start: 20200410, end: 20200623
  31. DUODOPA [Suspect]
     Active Substance: CARBIDOPA\LEVODOPA
     Dosage: MD=3ML, CD=3.5ML/HR DURING 16HRS, ED=1.5ML
     Route: 050
     Dates: start: 20200626, end: 2020
  32. DUODOPA [Suspect]
     Active Substance: CARBIDOPA\LEVODOPA
     Dosage: MD=2ML, CD=3.2ML/HR DURING 16HRS, ED=2ML; ND=2.2ML/HR DURING 8HRS
     Route: 050
     Dates: start: 20201207, end: 20201208
  33. DUODOPA [Suspect]
     Active Substance: CARBIDOPA\LEVODOPA
     Dosage: MD=1ML, CD=3.1ML/HR DURING 16HRS, ED=1.5ML; ND=2.0ML/HR DURING 8HRS
     Route: 050
     Dates: start: 20200901, end: 20200907
  34. MIRAPEXIN [Concomitant]
     Active Substance: PRAMIPEXOLE
     Indication: PARKINSON^S DISEASE
     Route: 048
  35. LYRICA [Concomitant]
     Active Substance: PREGABALIN
     Indication: PRODUCT USED FOR UNKNOWN INDICATION
  36. LORMETAZEPAM [Concomitant]
     Active Substance: LORMETAZEPAM
     Indication: PRODUCT USED FOR UNKNOWN INDICATION
  37. DUODOPA [Suspect]
     Active Substance: CARBIDOPA\LEVODOPA
     Dosage: MD=3ML, CD=3.2ML/HR DURING 16HRS, ED=1.5ML
     Route: 050
     Dates: start: 20191219, end: 201912
  38. DAFALGAN [Concomitant]
     Active Substance: ACETAMINOPHEN
     Indication: PRODUCT USED FOR UNKNOWN INDICATION

REACTIONS (15)
  - On and off phenomenon [Unknown]
  - Pain [Not Recovered/Not Resolved]
  - Wrong technique in device usage process [Unknown]
  - Speech disorder [Unknown]
  - Dyskinesia [Recovered/Resolved]
  - Myalgia [Recovered/Resolved]
  - Gait disturbance [Recovered/Resolved]
  - Device issue [Unknown]
  - Tremor [Not Recovered/Not Resolved]
  - Freezing phenomenon [Recovered/Resolved]
  - Muscle spasms [Not Recovered/Not Resolved]
  - Underdose [Recovered/Resolved]
  - Unevaluable event [Unknown]
  - Dystonia [Recovered/Resolved]
  - Freezing phenomenon [Not Recovered/Not Resolved]

NARRATIVE: CASE EVENT DATE: 2019
